FAERS Safety Report 23888639 (Version 1)
Quarter: 2024Q2

REPORT INFORMATION
  Report Type: Spontaneous
  Country: US (occurrence: None)
  Receive Date: 20240522
  Receipt Date: 20240522
  Transmission Date: 20240716
  Serious: Yes (Other)
  Sender: FDA-Public Use
  Company Number: None

PATIENT
  Age: 40 Year
  Sex: Female
  Weight: 126 kg

DRUGS (1)
  1. MINOXIDIL 7% / PROGESTERONE 0.1% [Suspect]
     Active Substance: MINOXIDIL\PROGESTERONE
     Indication: Alopecia
     Dosage: OTHER QUANTITY : 1 DROP(S);?OTHER ROUTE : DROP IN THE HAIR;?
     Route: 050
     Dates: start: 202405, end: 20240514

REACTIONS (2)
  - Alopecia [None]
  - Burning sensation [None]

NARRATIVE: CASE EVENT DATE: 20240509
